FAERS Safety Report 13328675 (Version 1)
Quarter: 2017Q1

REPORT INFORMATION
  Report Type: Spontaneous
  Country: US (occurrence: US)
  Receive Date: 20170310
  Receipt Date: 20170310
  Transmission Date: 20170428
  Serious: Yes (Other)
  Sender: FDA-Public Use
  Company Number: None

PATIENT
  Age: 67 Year
  Sex: Male

DRUGS (2)
  1. ESBRIET [Suspect]
     Active Substance: PIRFENIDONE
     Indication: IDIOPATHIC PULMONARY FIBROSIS
     Dosage: TID, DAY 15-ONWARD 3 CAPS PO TID
     Route: 048
     Dates: start: 20161129, end: 201612
  2. ESBRIET [Suspect]
     Active Substance: PIRFENIDONE
     Indication: IDIOPATHIC PULMONARY FIBROSIS
     Dosage: DAY 1-7 TK 267 MG CAP TID WITH FOOD, DAY 8-14 2 CAPS PO
     Route: 048
     Dates: start: 20161129, end: 201612

REACTIONS (5)
  - Decreased appetite [None]
  - Dyspnoea [None]
  - Pain in extremity [None]
  - Weight decreased [None]
  - Hypoaesthesia [None]

NARRATIVE: CASE EVENT DATE: 201612
